FAERS Safety Report 5913250-X (Version None)
Quarter: 2008Q4

REPORT INFORMATION
  Report Type: 
  Country: None (occurrence: None)
  Receive Date: 20081007
  Receipt Date: 20080926
  Transmission Date: 20090506
  Serious: Yes (Life-Threatening, Hospitalization)
  Sender: FDA-Public Use
  Company Number: GXKR2008GB09300

PATIENT
  Age: 54 Year
  Sex: Female
  Weight: 61 kg

DRUGS (2)
  1. VENLAFAXINE HCL [Suspect]
     Indication: ANXIETY
     Dosage: 37.5 MG, ORAL
     Route: 048
     Dates: start: 20080814, end: 20080815
  2. VENLAFAXINE HCL [Suspect]
     Indication: MENOPAUSAL SYMPTOMS
     Dosage: 37.5 MG, ORAL
     Route: 048
     Dates: start: 20080814, end: 20080815

REACTIONS (2)
  - BLINDNESS [None]
  - CONFUSIONAL STATE [None]
